FAERS Safety Report 7380946-5 (Version None)
Quarter: 2011Q1

REPORT INFORMATION
  Report Type: 
  Country: None (occurrence: None)
  Receive Date: 20110329
  Receipt Date: 20110318
  Transmission Date: 20110831
  Serious: Yes (Other)
  Sender: FDA-Public Use
  Company Number: PHHY2011BR23107

PATIENT
  Sex: Male
  Weight: 64 kg

DRUGS (4)
  1. HYDERGINE [Suspect]
     Indication: CEREBRAL CIRCULATORY FAILURE
     Dosage: 4.5 MG, QD (1 TABLET AT NIGHT)
     Dates: end: 20110319
  2. HYDERGINE [Suspect]
     Dosage: 6 MG, UNK
  3. AMLODIPINE BESILATE [Concomitant]
     Dosage: ONE TABLET DAILY
     Route: 048
  4. GLIMEPIRIDE [Concomitant]
     Indication: DIABETES MELLITUS
     Dosage: 3 MG, UNK
     Route: 048

REACTIONS (6)
  - AGGRESSION [None]
  - WRONG DRUG ADMINISTERED [None]
  - HYPERTENSION [None]
  - WRONG TECHNIQUE IN DRUG USAGE PROCESS [None]
  - DIABETES MELLITUS [None]
  - IRRITABILITY [None]
